FAERS Safety Report 6216536-7 (Version None)
Quarter: 2009Q2

REPORT INFORMATION
  Report Type: 
  Country: None (occurrence: None)
  Receive Date: 20090605
  Receipt Date: 20090525
  Transmission Date: 20091009
  Serious: Yes (Hospitalization)
  Sender: FDA-Public Use
  Company Number: FR-JNJFOC-20090405902

PATIENT
  Age: 12 Year
  Sex: Male

DRUGS (6)
  1. REMICADE [Suspect]
     Route: 042
  2. REMICADE [Suspect]
     Route: 042
  3. REMICADE [Suspect]
     Indication: COLITIS ULCERATIVE
     Route: 042
  4. CORTANCYL [Concomitant]
     Route: 048
  5. DIPENTUM [Concomitant]
     Route: 048
  6. PENTASA [Concomitant]

REACTIONS (6)
  - ABSCESS [None]
  - COLITIS ULCERATIVE [None]
  - HAEMOGLOBIN DECREASED [None]
  - PANCREATITIS ACUTE [None]
  - PYREXIA [None]
  - SEPSIS [None]
